FAERS Safety Report 5545462-1 (Version None)
Quarter: 2007Q4

REPORT INFORMATION
  Report Type: 
  Country: None (occurrence: None)
  Receive Date: 20071126
  Receipt Date: 20070425
  Transmission Date: 20080405
  Serious: Yes (Hospitalization)
  Sender: FDA-Public Use
  Company Number: 2007BH003676

PATIENT
  Age: 79 Year
  Sex: Male

DRUGS (2)
  1. DIANEAL [Suspect]
     Indication: PERITONEAL DIALYSIS
     Dosage: 6 L; IP
     Route: 033
  2. DIANEAL [Suspect]
     Indication: PERITONEAL DIALYSIS
     Dosage: IP
     Route: 033

REACTIONS (3)
  - INDWELLING CATHETER MANAGEMENT [None]
  - PAIN [None]
  - PERITONITIS [None]
